FAERS Safety Report 12370086 (Version 1)
Quarter: 2016Q2

REPORT INFORMATION
  Report Type: Report from Study
  Country: US (occurrence: US)
  Receive Date: 20160516
  Receipt Date: 20160516
  Transmission Date: 20160815
  Serious: Yes (Death)
  Sender: FDA-Public Use
  Company Number: US-ASTRAZENECA-2016SE28017

PATIENT
  Sex: Female

DRUGS (1)
  1. TAGRISSO [Suspect]
     Active Substance: OSIMERTINIB
     Indication: LUNG NEOPLASM MALIGNANT
     Route: 048

REACTIONS (7)
  - Fatigue [Recovering/Resolving]
  - Dizziness [Unknown]
  - Balance disorder [Unknown]
  - Dysgeusia [Recovering/Resolving]
  - Back pain [Recovering/Resolving]
  - Death [Fatal]
  - Nausea [Recovering/Resolving]
